FAERS Safety Report 14440839 (Version 1)
Quarter: 2018Q1

REPORT INFORMATION
  Report Type: Report from Study
  Country: MX (occurrence: MX)
  Receive Date: 20180125
  Receipt Date: 20180125
  Transmission Date: 20180509
  Serious: Yes (Death, Hospitalization)
  Sender: FDA-Public Use
  Company Number: MX-CELGENEUS-MEX-20180108301

PATIENT
  Age: 65 Year
  Sex: Male

DRUGS (1)
  1. VIDAZA [Suspect]
     Active Substance: AZACITIDINE
     Indication: MYELODYSPLASTIC SYNDROME
     Dosage: 100 MILLIGRAM
     Route: 065
     Dates: start: 20171205

REACTIONS (3)
  - Death [Fatal]
  - Seminal vesiculitis [Unknown]
  - Vomiting [Unknown]

NARRATIVE: CASE EVENT DATE: 20171211
